FAERS Safety Report 8122532-5 (Version None)
Quarter: 2012Q1

REPORT INFORMATION
  Report Type: 
  Country: None (occurrence: None)
  Receive Date: 20120208
  Receipt Date: 20120207
  Transmission Date: 20120608
  Serious: Yes (Death)
  Sender: FDA-Public Use
  Company Number: GB-ROCHE-1038055

PATIENT
  Sex: Male
  Weight: 98 kg

DRUGS (1)
  1. MABTHERA [Suspect]
     Indication: RHEUMATOID ARTHRITIS
     Dates: start: 20100429

REACTIONS (2)
  - CORONARY ARTERY THROMBOSIS [None]
  - ACUTE MYOCARDIAL INFARCTION [None]
